FAERS Safety Report 17973750 (Version 8)
Quarter: 2020Q4

REPORT INFORMATION
  Report Type: Report from Study
  Country: HU (occurrence: HU)
  Receive Date: 20200702
  Receipt Date: 20201229
  Transmission Date: 20210113
  Serious: Yes (Hospitalization, Other)
  Sender: FDA-Public Use
  Company Number: NVSC2020HU181922

PATIENT
  Age: 3 Month
  Sex: Female
  Weight: 5.4 kg

DRUGS (8)
  1. NUSINERSEN [Concomitant]
     Active Substance: NUSINERSEN
     Indication: SPINAL MUSCULAR ATROPHY
     Dosage: UNK
     Route: 065
  2. FAMOTIDINE. [Concomitant]
     Active Substance: FAMOTIDINE
     Indication: GASTRIC DISORDER
     Dosage: 2X2.5 MG
     Route: 065
     Dates: start: 20200526
  3. ZOLGENSMA [Suspect]
     Active Substance: ONASEMNOGENE ABEPARVOVEC-XIOI
     Dosage: 8.3 ML (FREQUENCY 3 X)
     Route: 042
  4. ZOLGENSMA [Suspect]
     Active Substance: ONASEMNOGENE ABEPARVOVEC-XIOI
     Dosage: 5.5 ML (FREQUENCY 1X)
     Route: 042
  5. GASTROTUSS [Concomitant]
     Active Substance: DEXPANTHENOL
     Indication: ERUCTATION
     Dosage: 1 ML
     Route: 065
     Dates: start: 2020
  6. ZOLGENSMA [Suspect]
     Active Substance: ONASEMNOGENE ABEPARVOVEC-XIOI
     Indication: SPINAL MUSCULAR ATROPHY
     Dosage: 31 ML, ONCE/SINGLE
     Route: 042
     Dates: start: 20200527
  7. VITAMIN D [Concomitant]
     Active Substance: VITAMIN D NOS
     Indication: PRODUCT USED FOR UNKNOWN INDICATION
     Dosage: 2 DRP, QD
     Route: 065
     Dates: start: 2020
  8. PREDNISOLON [Concomitant]
     Active Substance: PREDNISOLONE
     Indication: PRODUCT USED FOR UNKNOWN INDICATION
     Dosage: 1X 5 MG (1 MG/KG)
     Route: 054
     Dates: start: 20200526

REACTIONS (18)
  - Bradycardia [Unknown]
  - Heart rate abnormal [Recovered/Resolved]
  - Flatulence [Recovered/Resolved]
  - Leukopenia [Unknown]
  - Thrombocytopenia [Unknown]
  - Aspartate aminotransferase increased [Recovering/Resolving]
  - Enterobacter infection [Unknown]
  - Pyrexia [Unknown]
  - Blood lactate dehydrogenase increased [Recovered/Resolved]
  - Fluid intake reduced [Unknown]
  - Hepatic enzyme increased [Recovering/Resolving]
  - Pyrexia [Recovered/Resolved]
  - Inflammation [Recovered/Resolved]
  - Hyperaemia [Unknown]
  - Granulocytopenia [Unknown]
  - Neutropenia [Recovering/Resolving]
  - Troponin I increased [Recovered/Resolved]
  - Alanine aminotransferase increased [Unknown]

NARRATIVE: CASE EVENT DATE: 2020
